FAERS Safety Report 20579899 (Version 5)
Quarter: 2023Q4

REPORT INFORMATION
  Report Type: Report from Study
  Country: ES (occurrence: None)
  Receive Date: 20220310
  Receipt Date: 20231122
  Transmission Date: 20240109
  Serious: Yes (Other)
  Sender: FDA-Public Use
  Company Number: ES-ROCHE-3000872

PATIENT
  Age: 69 Year
  Sex: Female
  Weight: 78 kg

DRUGS (4)
  1. ATEZOLIZUMAB [Suspect]
     Active Substance: ATEZOLIZUMAB
     Indication: Non-small cell lung cancer
     Dosage: ON 30/DEC/2021, RECEIVED LAST DOSE OF ATEZOLIZUMAB BEFORE EVENT.
     Route: 041
  2. ATEZOLIZUMAB [Suspect]
     Active Substance: ATEZOLIZUMAB
     Dosage: ON 24/MAR/2022, RECEIVED LAST DOSE OF ATEZOLIZUMAB BEFORE EVENT, CYCLE 41.
     Route: 041
  3. BEVACIZUMAB [Suspect]
     Active Substance: BEVACIZUMAB
     Indication: Non-small cell lung cancer
     Dosage: ON 07/JAN/2020 RECEIVED LAST DOSE OF BEVACIZUMAB BEFORE EVENT.?CYCLE 1: 100 MG AND 400 MG
     Route: 042
  4. OMEPRAZOLE [Concomitant]
     Active Substance: OMEPRAZOLE
     Route: 048

REACTIONS (1)
  - Thrombophlebitis [Recovered/Resolved]

NARRATIVE: CASE EVENT DATE: 20211231
